FAERS Safety Report 24228055 (Version 2)
Quarter: 2024Q3

REPORT INFORMATION
  Report Type: Spontaneous
  Country: US (occurrence: US)
  Receive Date: 20240820
  Receipt Date: 20240911
  Transmission Date: 20241017
  Serious: Yes (Hospitalization)
  Sender: CSL BEHRING
  Company Number: US-BEH-2024177098

PATIENT
  Age: 81 Year
  Sex: Female

DRUGS (1)
  1. HIZENTRA [Suspect]
     Active Substance: HUMAN IMMUNOGLOBULIN G
     Indication: Immunodeficiency common variable
     Dosage: 2 G, TIW
     Route: 058
     Dates: start: 20240429

REACTIONS (3)
  - Joint swelling [Unknown]
  - Lymphoedema [Unknown]
  - Fall [Unknown]

NARRATIVE: CASE EVENT DATE: 20240507
